FAERS Safety Report 19606589 (Version 2)
Quarter: 2021Q3

REPORT INFORMATION
  Report Type: Spontaneous
  Country: BR (occurrence: BR)
  Receive Date: 20210725
  Receipt Date: 20210803
  Transmission Date: 20211014
  Serious: Yes (Other)
  Sender: FDA-Public Use
  Company Number: NVSC2021BR164863

PATIENT
  Sex: Male

DRUGS (2)
  1. ALENIA [Concomitant]
     Indication: PRODUCT USED FOR UNKNOWN INDICATION
     Dosage: UNK, BID, 1 IN MORNING AND 1 IN EVENING
     Route: 065
  2. SEEBRI [Suspect]
     Active Substance: GLYCOPYRROLATE
     Indication: PRODUCT USED FOR UNKNOWN INDICATION
     Dosage: UNK UNK, QD (IN MORNING) 50 MCG
     Route: 065

REACTIONS (6)
  - Total lung capacity decreased [Unknown]
  - Pulmonary fibrosis [Unknown]
  - Fatigue [Unknown]
  - Product availability issue [Unknown]
  - Deafness [Unknown]
  - Balance disorder [Unknown]
